APPROVED DRUG PRODUCT: FLOROPRYL
Active Ingredient: ISOFLUROPHATE
Strength: 0.025%
Dosage Form/Route: OINTMENT;OPHTHALMIC
Application: N010656 | Product #001
Applicant: MERCK AND CO INC
Approved: Approved Prior to Jan 1, 1982 | RLD: No | RS: No | Type: DISCN